FAERS Safety Report 23103874 (Version 1)
Quarter: 2023Q4

REPORT INFORMATION
  Report Type: Spontaneous
  Country: US (occurrence: US)
  Receive Date: 20231025
  Receipt Date: 20231025
  Transmission Date: 20240109
  Serious: Yes (Other)
  Sender: FDA-Public Use
  Company Number: US-TARO PHARMACEUTICALS USA INC.-2023TAR01095

PATIENT

DRUGS (1)
  1. MINOXIDIL [Suspect]
     Active Substance: MINOXIDIL
     Indication: Alopecia
     Dosage: BID, UNK, APPLY 1/2 CAPFUL TO SCALP IN HAIR LOSS AREA
     Route: 061

REACTIONS (1)
  - Follicular lymphoma [Not Recovered/Not Resolved]
